FAERS Safety Report 18594140 (Version 2)
Quarter: 2020Q4

REPORT INFORMATION
  Report Type: Spontaneous
  Country: GB (occurrence: GB)
  Receive Date: 20201209
  Receipt Date: 20201229
  Transmission Date: 20210114
  Serious: Yes (Hospitalization, Other)
  Sender: FDA-Public Use
  Company Number: NVSC2020GB326372

PATIENT
  Age: 58 Year
  Sex: Female

DRUGS (5)
  1. CALCIUM FOLINATE [Suspect]
     Active Substance: LEUCOVORIN CALCIUM
     Indication: ADENOCARCINOMA PANCREAS
     Dosage: TWO-WEEK CYCLES
     Route: 065
     Dates: start: 202003
  2. OXALIPLATIN. [Suspect]
     Active Substance: OXALIPLATIN
     Indication: ADENOCARCINOMA PANCREAS
     Dosage: TWO-WEEK CYCLES
     Route: 065
     Dates: start: 202003
  3. FLUOROURACIL. [Suspect]
     Active Substance: FLUOROURACIL
     Indication: ADENOCARCINOMA PANCREAS
     Dosage: TWO-WEEK CYCLES
     Route: 065
     Dates: start: 202003
  4. LEVOTHYROXINE. [Concomitant]
     Active Substance: LEVOTHYROXINE
     Indication: HYPOTHYROIDISM
     Dosage: UNK
     Route: 065
  5. IRINOTECAN [Suspect]
     Active Substance: IRINOTECAN
     Indication: ADENOCARCINOMA PANCREAS
     Dosage: TWO-WEEK CYCLES
     Route: 065
     Dates: start: 202003

REACTIONS (9)
  - Aortic intramural haematoma [Recovered/Resolved]
  - Vasculitis [Recovered/Resolved]
  - Klebsiella infection [Recovered/Resolved]
  - Acute kidney injury [Unknown]
  - Aortitis [Recovered/Resolved]
  - Off label use [Unknown]
  - Urinary tract infection [Recovered/Resolved]
  - Rash maculo-papular [Recovered/Resolved]
  - Neutropenic colitis [Unknown]
